FAERS Safety Report 4290567-9 (Version None)
Quarter: 2004Q1

REPORT INFORMATION
  Report Type: 
  Country: None (occurrence: None)
  Receive Date: 20040211
  Receipt Date: 20040203
  Transmission Date: 20041129
  Serious: Yes (Death, Life-Threatening, Hospitalization, Other)
  Sender: FDA-Public Use
  Company Number: 200411538GDDC

PATIENT
  Age: 54 Year
  Sex: Female
  Weight: 57.27 kg

DRUGS (3)
  1. TAXOTERE [Suspect]
     Indication: BREAST CANCER
     Route: 042
     Dates: start: 20031205, end: 20040116
  2. IMODIUM ^JANSSEN^ [Concomitant]
     Indication: DIARRHOEA
     Route: 048
     Dates: start: 20030923
  3. REMERON [Concomitant]
     Dates: start: 20031106

REACTIONS (7)
  - ACUTE RESPIRATORY FAILURE [None]
  - BACK PAIN [None]
  - CARDIO-RESPIRATORY ARREST [None]
  - CHEST PAIN [None]
  - CHILLS [None]
  - DYSPNOEA [None]
  - PYREXIA [None]
